FAERS Safety Report 5247486-0 (Version None)
Quarter: 2007Q1

REPORT INFORMATION
  Report Type: 
  Country: None (occurrence: None)
  Receive Date: 20070216
  Receipt Date: 20070206
  Transmission Date: 20070707
  Serious: Yes (Hospitalization)
  Sender: FDA-Public Use
  Company Number: 238189K06USA

PATIENT
  Age: 58 Year
  Sex: Female

DRUGS (7)
  1. REBIF [Suspect]
     Indication: MULTIPLE SCLEROSIS
     Dosage: 44 MCG, 3 IN 1 WEEKS, SUBCUTANEOUS
     Route: 058
     Dates: start: 20060911, end: 20070101
  2. ATENOLOL [Concomitant]
  3. ACCUPRIL [Concomitant]
  4. METFORMIN [Concomitant]
  5. GLIPIZIDE [Concomitant]
  6. RED YEAST RICE (OTHER CHOLESTEROL AND TRIGLYCERIDE REDUCERS) [Concomitant]
  7. COPAXONE [Concomitant]

REACTIONS (2)
  - CHEST PAIN [None]
  - EJECTION FRACTION DECREASED [None]
